FAERS Safety Report 4984155-6 (Version None)
Quarter: 2006Q2

REPORT INFORMATION
  Report Type: 
  Country: None (occurrence: None)
  Receive Date: 20060427
  Receipt Date: 20060405
  Transmission Date: 20061013
  Serious: Yes (Hospitalization)
  Sender: FDA-Public Use
  Company Number: PHBS2006JP05020

PATIENT
  Age: 31 Year
  Sex: Female

DRUGS (6)
  1. VOLTAREN [Suspect]
     Indication: PHARYNGOLARYNGEAL PAIN
     Dosage: UNK, UNK
     Route: 048
     Dates: start: 20060301, end: 20060404
  2. MENDON [Concomitant]
     Indication: INSOMNIA
     Route: 048
     Dates: start: 20060301, end: 20060404
  3. MUCODYNE [Concomitant]
     Indication: HYPERSENSITIVITY
     Route: 048
     Dates: start: 20060301, end: 20060404
  4. KLARICID [Suspect]
     Route: 048
     Dates: start: 20060301, end: 20060404
  5. HUSCODE [Suspect]
     Indication: COUGH
     Route: 048
     Dates: start: 20060301, end: 20060404
  6. EBASTEL [Concomitant]
     Indication: HYPERSENSITIVITY
     Route: 048
     Dates: start: 20060301, end: 20060404

REACTIONS (4)
  - ABDOMINAL HAEMATOMA [None]
  - ABDOMINAL PAIN [None]
  - GASTROINTESTINAL HAEMORRHAGE [None]
  - MUSCLE HAEMORRHAGE [None]
